FAERS Safety Report 12645382 (Version 1)
Quarter: 2016Q3

REPORT INFORMATION
  Report Type: Spontaneous
  Country: US (occurrence: US)
  Receive Date: 20160811
  Receipt Date: 20160811
  Transmission Date: 20161109
  Serious: No
  Sender: FDA-Public Use
  Company Number: US-JAZZ-2016-US-004637

PATIENT
  Sex: Female

DRUGS (21)
  1. XYREM [Suspect]
     Active Substance: SODIUM OXYBATE
     Dosage: 3.75 G, BID
     Route: 048
     Dates: start: 201602
  2. RAINBOW [Concomitant]
  3. IRON [Concomitant]
     Active Substance: IRON
  4. SILVER BIOTICS [Concomitant]
  5. LEVOTHYROXINE SODIUM. [Concomitant]
     Active Substance: LEVOTHYROXINE SODIUM
  6. OLIVE LEAF EXTRACT [Concomitant]
  7. CYANOCOBALAMIN. [Concomitant]
     Active Substance: CYANOCOBALAMIN
  8. VITAMIN D3 [Concomitant]
     Active Substance: CHOLECALCIFEROL
  9. XYREM [Suspect]
     Active Substance: SODIUM OXYBATE
     Dosage: 3 G, BID
     Route: 048
     Dates: start: 201601, end: 201602
  10. CALCIUM LACTATE [Concomitant]
     Active Substance: CALCIUM LACTATE
  11. NATURE-THROID [Concomitant]
     Active Substance: THYROID, PORCINE
  12. ZINC GLUCONATE [Concomitant]
     Active Substance: ZINC GLUCONATE
  13. ACYCLOVIR. [Concomitant]
     Active Substance: ACYCLOVIR
  14. L-CARNITINE [Concomitant]
     Active Substance: LEVOCARNITINE
  15. EFFEXOR [Concomitant]
     Active Substance: VENLAFAXINE HYDROCHLORIDE
  16. VITAMIN C [Concomitant]
     Active Substance: ASCORBIC ACID
  17. ACIDOPHILUS [Concomitant]
     Active Substance: LACTOBACILLUS ACIDOPHILUS
  18. L-LYSINE [Concomitant]
     Active Substance: LYSINE
  19. XYREM [Suspect]
     Active Substance: SODIUM OXYBATE
     Indication: NARCOLEPSY
     Dosage: 2.25 G, BID
     Route: 048
     Dates: start: 201601, end: 201601
  20. MILK THISTLE [Concomitant]
     Active Substance: MILK THISTLE
  21. RITALIN [Concomitant]
     Active Substance: METHYLPHENIDATE HYDROCHLORIDE

REACTIONS (1)
  - Coeliac disease [Unknown]

NARRATIVE: CASE EVENT DATE: 2016
